FAERS Safety Report 17364626 (Version 4)
Quarter: 2020Q2

REPORT INFORMATION
  Report Type: Spontaneous
  Country: JP (occurrence: JP)
  Receive Date: 20200204
  Receipt Date: 20200415
  Transmission Date: 20200713
  Serious: Yes (Hospitalization, Other)
  Sender: FDA-Public Use
  Company Number: JP-ROCHE-2534875

PATIENT
  Age: 18 Year
  Sex: Male
  Weight: 67 kg

DRUGS (4)
  1. MUCODYNE-DS [Concomitant]
     Active Substance: CARBOCYSTEINE
     Route: 050
  2. DANTRIUM [Concomitant]
     Active Substance: DANTROLENE SODIUM
     Dosage: CRUSH AND ADMINISTER
     Route: 050
     Dates: start: 201701
  3. HEMLIBRA [Suspect]
     Active Substance: EMICIZUMAB-KXWH
     Indication: HAEMOPHILIA A WITHOUT INHIBITORS
     Route: 058
     Dates: start: 20190201
  4. CORTRIL [Concomitant]
     Active Substance: HYDROCORTISONE
     Dosage: CRUSH AND ADMINISTER
     Route: 050
     Dates: start: 201701

REACTIONS (3)
  - Muscle haemorrhage [Recovering/Resolving]
  - Myositis [Unknown]
  - Endocarditis [Unknown]

NARRATIVE: CASE EVENT DATE: 20191204
